FAERS Safety Report 5827787-5 (Version None)
Quarter: 2008Q3

REPORT INFORMATION
  Report Type: 
  Country: None (occurrence: None)
  Receive Date: 20080728
  Receipt Date: 20080714
  Transmission Date: 20090109
  Serious: Yes (Other)
  Sender: FDA-Public Use
  Company Number: DSU-2008-01078

PATIENT
  Age: 55 Year
  Sex: Female
  Weight: 88 kg

DRUGS (3)
  1. OLMESARTAN MEDOXOMIL AND HYDROCHLOROTHIZIDE [Suspect]
     Indication: HYPERTENSION
     Dosage: 40/12.5 MG (QD) ,PER ORAL
     Route: 048
     Dates: start: 20080709, end: 20080712
  2. NORVASC [Suspect]
     Indication: DRUG USE FOR UNKNOWN INDICATION
     Dosage: PER ORAL
     Route: 048
     Dates: start: 20080709, end: 20080712
  3. ATENOLOL [Concomitant]

REACTIONS (10)
  - BURNING SENSATION [None]
  - CANDIDIASIS [None]
  - DYSPNOEA [None]
  - FATIGUE [None]
  - MEASLES [None]
  - OROPHARYNGEAL PAIN [None]
  - PHARYNGEAL OEDEMA [None]
  - RASH PAPULAR [None]
  - SKIN PLAQUE [None]
  - SWOLLEN TONGUE [None]
